FAERS Safety Report 6288095-4 (Version None)
Quarter: 2009Q3

REPORT INFORMATION
  Report Type: 
  Country: None (occurrence: None)
  Receive Date: 20090729
  Receipt Date: 20080707
  Transmission Date: 20100115
  Serious: No
  Sender: FDA-Public Use
  Company Number: A0736497A

PATIENT
  Sex: Female

DRUGS (4)
  1. RANITIDINE [Suspect]
     Dosage: 150MG TWICE PER DAY
     Route: 048
     Dates: start: 20080101, end: 20080101
  2. ZANTAC [Suspect]
     Dosage: 150MG TWICE PER DAY
     Route: 048
  3. ZANTAC OTC [Suspect]
     Dosage: 150MG TWICE PER DAY
     Route: 048
     Dates: start: 20080601, end: 20080601
  4. PHENERGAN [Concomitant]

REACTIONS (1)
  - NAUSEA [None]
